FAERS Safety Report 18745806 (Version 3)
Quarter: 2021Q1

REPORT INFORMATION
  Report Type: Spontaneous
  Country: IL (occurrence: IL)
  Receive Date: 20210115
  Receipt Date: 20210209
  Transmission Date: 20210419
  Serious: Yes (Life-Threatening)
  Sender: FDA-Public Use
  Company Number: IL-TEVA-2020-IL-1824844

PATIENT
  Age: 35 Year
  Sex: Female

DRUGS (2)
  1. DEXTROAMPHET SACCHARAT, AMPHET ASPARTATE, DEXTROAMPHET SULFATE AND AMPHET SULFAT [Suspect]
     Active Substance: AMPHETAMINE ASPARTATE\AMPHETAMINE SULFATE\DEXTROAMPHETAMINE SACCHARATE\DEXTROAMPHETAMINE SULFATE
     Indication: DISTURBANCE IN ATTENTION
     Dosage: ONE TABLET (I DO NOT TAKE IT EVERY DAY)
     Route: 065
     Dates: start: 20200608
  2. AERIUS [Concomitant]

REACTIONS (21)
  - Headache [Unknown]
  - Fatigue [Unknown]
  - Insomnia [Unknown]
  - Pruritus [Unknown]
  - Hypersensitivity [Unknown]
  - Pain [Unknown]
  - General physical condition abnormal [Unknown]
  - Product compounding quality issue [Unknown]
  - Product quality issue [Unknown]
  - Poor peripheral circulation [Unknown]
  - Unevaluable event [Unknown]
  - Chest discomfort [Unknown]
  - Angina pectoris [Unknown]
  - Feeling abnormal [Unknown]
  - Rash [Unknown]
  - Blister [Unknown]
  - Paraesthesia [Unknown]
  - Discomfort [Unknown]
  - Drug ineffective [Unknown]
  - Chest pain [Unknown]
  - Restlessness [Unknown]
